FAERS Safety Report 4547169-6 (Version None)
Quarter: 2005Q1

REPORT INFORMATION
  Report Type: 
  Country: None (occurrence: None)
  Receive Date: 20050107
  Receipt Date: 20041213
  Transmission Date: 20050727
  Serious: Yes (Hospitalization)
  Sender: FDA-Public Use
  Company Number: FR-ABBOTT-04P-056-0283702-00

PATIENT
  Age: 53 Year
  Sex: Female

DRUGS (6)
  1. NAXY TABLETS [Suspect]
     Indication: GASTROINTESTINAL ULCER
     Route: 048
     Dates: start: 20040701, end: 20040721
  2. HYDROXYCHLOROQUINE SULFATE [Suspect]
     Indication: RHEUMATOID ARTHRITIS
     Route: 048
     Dates: start: 20040707, end: 20040709
  3. PANTOPRAZOLE [Suspect]
     Indication: GASTROINTESTINAL ULCER
     Route: 048
     Dates: start: 20040701, end: 20040714
  4. AMOXICILLIN TRIHYDRATE [Suspect]
     Indication: GASTROINTESTINAL ULCER
     Route: 048
     Dates: start: 20040701, end: 20040721
  5. DICLOFENAC SODIUM [Suspect]
     Indication: RHEUMATOID ARTHRITIS
     Route: 048
     Dates: start: 20030915, end: 20040709
  6. TRAMADOL HCL [Suspect]
     Indication: BACK PAIN
     Route: 048
     Dates: start: 20040115

REACTIONS (3)
  - PRURITUS [None]
  - RASH MACULAR [None]
  - TOXIC SKIN ERUPTION [None]
